FAERS Safety Report 17010347 (Version 1)
Quarter: 2019Q4

REPORT INFORMATION
  Report Type: Report from Study
  Country: US (occurrence: US)
  Receive Date: 20191108
  Receipt Date: 20191108
  Transmission Date: 20200122
  Serious: Yes (Death, Life-Threatening, Hospitalization)
  Sender: FDA-Public Use
  Company Number: US-PFIZER INC-2266590

PATIENT
  Age: 60 Year
  Sex: Male
  Weight: 101.3 kg

DRUGS (10)
  1. EPOETIN ALFA [Suspect]
     Active Substance: ERYTHROPOIETIN
     Indication: NEPHROGENIC ANAEMIA
     Dosage: 1400 IU, NOT REPORTED, FREQ: 3 WEEK; INTERVAL: 1
     Route: 042
     Dates: start: 20130412, end: 20140312
  2. AMBIEN [Concomitant]
     Active Substance: ZOLPIDEM TARTRATE
     Indication: INSOMNIA
     Dosage: 10 MG, FREQ: 1DAY; INTERVAL: 1
     Route: 048
     Dates: start: 20130430, end: 20140317
  3. PRAVACHOL [Concomitant]
     Active Substance: PRAVASTATIN SODIUM
     Indication: HYPERLIPIDAEMIA
     Dosage: 20 MG, FREQ: 1 DAY; INTERVAL: 1
     Route: 048
     Dates: start: 20110315, end: 20140317
  4. ASPIRIN /00002701/ [Concomitant]
     Active Substance: ASPIRIN
     Indication: CEREBROVASCULAR ACCIDENT
     Dosage: 81 MG, FREQ: I DAY; INTERVAL: 1
     Route: 048
     Dates: start: 20110315, end: 20140317
  5. GLIPIZIDE. [Concomitant]
     Active Substance: GLIPIZIDE
     Indication: DIABETES MELLITUS
     Dosage: 10 MG, FREQ: 2 DAY; INTERVAL: 1
     Route: 048
     Dates: start: 20001101, end: 20140317
  6. LISINOPRIL. [Concomitant]
     Active Substance: LISINOPRIL
     Indication: HYPERTENSION
     Dosage: 40 MG, FREQ: 1 DAY; INTERVAL: 1
     Route: 048
     Dates: end: 20140317
  7. COLACE [Concomitant]
     Active Substance: DOCUSATE SODIUM
     Indication: CONSTIPATION
     Dosage: 300 MG, FREQ: 1 DAY; INTERVAL: 1
     Route: 048
     Dates: start: 20120329, end: 20140317
  8. PHOSLO [Concomitant]
     Active Substance: CALCIUM ACETATE
     Indication: HYPERPHOSPHATAEMIA
     Dosage: 2001 MG, WITH MEALS, FREQ: 3 DAY; INTERVAL: 1
     Route: 048
     Dates: start: 20110321, end: 20140317
  9. GABAPENTIN. [Concomitant]
     Active Substance: GABAPENTIN
     Indication: CARPAL TUNNEL SYNDROME
     Dosage: 300 MG, FREQ: 1 DAY; INTERVAL: 1
     Route: 048
     Dates: start: 20130430, end: 20140317
  10. LEVOTHYROXINE. [Concomitant]
     Active Substance: LEVOTHYROXINE
     Indication: HYPOTHYROIDISM
     Dosage: 25 MG, FREQ: 1 DAY; INTERVAL: 1
     Route: 048
     Dates: start: 20130521, end: 20140317

REACTIONS (1)
  - Myocardial infarction [Fatal]

NARRATIVE: CASE EVENT DATE: 20140317
